FAERS Safety Report 7244671-3 (Version None)
Quarter: 2011Q1

REPORT INFORMATION
  Report Type: 
  Country: None (occurrence: None)
  Receive Date: 20110125
  Receipt Date: 20101207
  Transmission Date: 20110831
  Serious: No
  Sender: FDA-Public Use
  Company Number: US-MYLANLABS-2010S1022536

PATIENT

DRUGS (1)
  1. CLONIDINE [Suspect]
     Route: 062

REACTIONS (2)
  - APPLICATION SITE VESICLES [None]
  - APPLICATION SITE ERYTHEMA [None]
